FAERS Safety Report 19351460 (Version 1)
Quarter: 2021Q2

REPORT INFORMATION
  Report Type: Spontaneous
  Country: IT (occurrence: IT)
  Receive Date: 20210531
  Receipt Date: 20210531
  Transmission Date: 20210717
  Serious: Yes (Life-Threatening)
  Sender: FDA-Public Use
  Company Number: IT-PFIZER INC-2021607556

PATIENT
  Age: 70 Year
  Sex: Male

DRUGS (11)
  1. SPIRONOLACTONE. [Concomitant]
     Active Substance: SPIRONOLACTONE
     Indication: MYOCARDIAL INFARCTION
     Dosage: UNK
  2. NITROGLYCERINE [Concomitant]
     Active Substance: NITROGLYCERIN
     Indication: MYOCARDIAL INFARCTION
     Dosage: UNK
     Route: 062
  3. DOPAMINE HCL [Suspect]
     Active Substance: DOPAMINE HYDROCHLORIDE
     Indication: MYOCARDIAL INFARCTION
     Dosage: LOW?DOSE INOTROPES
  4. TORASEMIDE [Concomitant]
     Active Substance: TORSEMIDE
     Indication: MYOCARDIAL INFARCTION
     Dosage: UNK
  5. ACETYLSALICYLIC ACID [Concomitant]
     Active Substance: ASPIRIN
     Indication: MYOCARDIAL INFARCTION
     Dosage: UNK
  6. DOBUTAMINE [Suspect]
     Active Substance: DOBUTAMINE HYDROCHLORIDE
     Indication: MYOCARDIAL INFARCTION
     Dosage: LOW?DOSE INOTROPES
  7. CLOPIDOGREL [Suspect]
     Active Substance: CLOPIDOGREL BISULFATE
     Indication: MYOCARDIAL INFARCTION
     Dosage: UNK
  8. METOPROLOL. [Concomitant]
     Active Substance: METOPROLOL
     Indication: MYOCARDIAL INFARCTION
     Dosage: UNK
  9. RANOLAZINE. [Concomitant]
     Active Substance: RANOLAZINE
     Indication: MYOCARDIAL INFARCTION
     Dosage: UNK
  10. FUROSEMIDE. [Concomitant]
     Active Substance: FUROSEMIDE
     Indication: DIURETIC THERAPY
     Dosage: UNK
     Route: 048
  11. RAMIPRIL. [Concomitant]
     Active Substance: RAMIPRIL
     Indication: MYOCARDIAL INFARCTION
     Dosage: UNK

REACTIONS (1)
  - Condition aggravated [Unknown]
